FAERS Safety Report 23073673 (Version 2)
Quarter: 2023Q4

REPORT INFORMATION
  Report Type: Spontaneous
  Country: US (occurrence: US)
  Receive Date: 20231017
  Receipt Date: 20231206
  Transmission Date: 20240110
  Serious: No
  Sender: FDA-Public Use
  Company Number: US-PFIZER INC-202300316353

PATIENT
  Age: 31 Year
  Sex: Female
  Weight: 81.65 kg

DRUGS (1)
  1. DEPO-PROVERA [Suspect]
     Active Substance: MEDROXYPROGESTERONE ACETATE
     Indication: Contraception
     Dosage: UNK, EVERY 3 MONTHS

REACTIONS (3)
  - Poor quality product administered [Unknown]
  - Device defective [Unknown]
  - Needle issue [Unknown]
